FAERS Safety Report 20813557 (Version 1)
Quarter: 2022Q2

REPORT INFORMATION
  Report Type: Spontaneous
  Country: US (occurrence: US)
  Receive Date: 20220511
  Receipt Date: 20220511
  Transmission Date: 20220721
  Serious: No
  Sender: FDA-Public Use
  Company Number: US-009507513-2204USA005605

PATIENT
  Age: 33 Year
  Sex: Male

DRUGS (2)
  1. TEMODAR [Suspect]
     Active Substance: TEMOZOLOMIDE
     Indication: Glioblastoma
     Dosage: UNK
  2. PANOBINOSTAT [Suspect]
     Active Substance: PANOBINOSTAT
     Indication: Glioblastoma
     Dosage: UNK

REACTIONS (1)
  - Product use issue [Unknown]
